FAERS Safety Report 7786134-2 (Version None)
Quarter: 2011Q3

REPORT INFORMATION
  Report Type: 
  Country: None (occurrence: None)
  Receive Date: 20110929
  Receipt Date: 20110921
  Transmission Date: 20111222
  Serious: Yes (Other)
  Sender: FDA-Public Use
  Company Number: US-AMGEN-USASP2011048697

PATIENT
  Sex: Female

DRUGS (1)
  1. ENBREL [Suspect]
     Indication: RHEUMATOID ARTHRITIS
     Dosage: 50 MG, QWK
     Dates: start: 20060629, end: 20091201

REACTIONS (4)
  - RHEUMATOID ARTHRITIS [None]
  - HAEMATOCHEZIA [None]
  - FATIGUE [None]
  - UVEITIS [None]
